FAERS Safety Report 15948659 (Version 1)
Quarter: 2019Q1

REPORT INFORMATION
  Report Type: Spontaneous
  Country: US (occurrence: US)
  Receive Date: 20190211
  Receipt Date: 20190211
  Transmission Date: 20190417
  Serious: Yes (Other)
  Sender: FDA-Public Use
  Company Number: US-SHIRE-US201904123

PATIENT
  Sex: Female

DRUGS (1)
  1. TAKHZYRO [Suspect]
     Active Substance: LANADELUMAB-FLYO
     Indication: OFF LABEL USE
     Dosage: 300 MILLIGRAM
     Dates: start: 201811

REACTIONS (4)
  - Sinusitis [Unknown]
  - Off label use [Unknown]
  - Respiratory disorder [Unknown]
  - Headache [Unknown]
